FAERS Safety Report 15749174 (Version 5)
Quarter: 2019Q1

REPORT INFORMATION
  Report Type: Report from Study
  Country: None (occurrence: BE)
  Receive Date: 20181221
  Receipt Date: 20190118
  Transmission Date: 20190417
  Serious: Yes (Hospitalization)
  Sender: FDA-Public Use
  Company Number: BE-ABBVIE-18S-013-2597460-00

PATIENT
  Sex: Male

DRUGS (5)
  1. ESCITALOPRAM [Concomitant]
     Active Substance: ESCITALOPRAM OXALATE
     Indication: PRODUCT USED FOR UNKNOWN INDICATION
     Route: 065
  2. DUODOPA [Suspect]
     Active Substance: CARBIDOPA\LEVODOPA
     Dosage: DOSES CONTINUOUSLY MONITORED AND ADAPTED
     Route: 050
     Dates: start: 20100510, end: 20180821
  3. DUODOPA [Suspect]
     Active Substance: CARBIDOPA\LEVODOPA
     Dosage: MD= 4.5ML CD= 3.4ML/HR DURING 16HRS ED= 2ML
     Route: 050
     Dates: start: 20180821, end: 20181217
  4. DUODOPA [Suspect]
     Active Substance: CARBIDOPA\LEVODOPA
     Indication: PARKINSON^S DISEASE
     Dosage: MD= 5ML CD= 3.4ML/HR DURING 16HRS ED= 1.2ML
     Route: 050
     Dates: start: 20100406, end: 20100510
  5. PROLOPA 250 [Concomitant]
     Indication: PRODUCT USED FOR UNKNOWN INDICATION
     Dosage: FORM STRENGTH: 200MG/50MG RESCUE MEDICATION
     Route: 065

REACTIONS (7)
  - Device connection issue [Unknown]
  - Off label use [Unknown]
  - Incorrect route of product administration [Unknown]
  - Stoma site extravasation [Unknown]
  - Gastrointestinal fistula [Not Recovered/Not Resolved]
  - Device dislocation [Unknown]
  - Device expulsion [Unknown]
